FAERS Safety Report 20379817 (Version 1)
Quarter: 2022Q1

REPORT INFORMATION
  Report Type: Spontaneous
  Country: US (occurrence: US)
  Receive Date: 20220126
  Receipt Date: 20220126
  Transmission Date: 20220423
  Serious: No
  Sender: FDA-Public Use
  Company Number: US-HORIZON THERAPEUTICS-HZN-2021-009998

PATIENT
  Sex: Male

DRUGS (2)
  1. PENNSAID [Suspect]
     Active Substance: DICLOFENAC SODIUM
     Indication: Osteoarthritis
     Dosage: 40MG, USE 2 PUMPS TWICE A DAY
     Route: 065
  2. PENNSAID [Suspect]
     Active Substance: DICLOFENAC SODIUM
     Indication: Back pain

REACTIONS (3)
  - Insomnia [Recovering/Resolving]
  - Back pain [Unknown]
  - Off label use [Recovering/Resolving]
